FAERS Safety Report 8310587-4 (Version None)
Quarter: 2012Q2

REPORT INFORMATION
  Report Type: 
  Country: None (occurrence: None)
  Receive Date: 20120425
  Receipt Date: 20120425
  Transmission Date: 20120825
  Serious: Yes (Death)
  Sender: FDA-Public Use
  Company Number: None

PATIENT
  Age: 28 Year
  Sex: Female

DRUGS (1)
  1. VICODIN [Suspect]

REACTIONS (4)
  - INCORRECT DOSE ADMINISTERED [None]
  - HEPATIC ENCEPHALOPATHY [None]
  - BRAIN DEATH [None]
  - ACUTE HEPATIC FAILURE [None]
